FAERS Safety Report 9372424 (Version 1)
Quarter: 2013Q2

REPORT INFORMATION
  Report Type: Spontaneous
  Country: JP (occurrence: None)
  Receive Date: 20130625
  Receipt Date: 20130625
  Transmission Date: 20140414
  Serious: Yes (Other)
  Sender: FDA-Public Use
  Company Number: JP-20120011

PATIENT
  Age: 82 Year
  Sex: Male

DRUGS (8)
  1. DOTAREM [Suspect]
     Indication: NUCLEAR MAGNETIC RESONANCE IMAGING
     Route: 042
     Dates: start: 20100423, end: 20100423
  2. (IOPAMIDOL (IOPAMIDOL) [Concomitant]
  3. (BUCILLAMINE) (BUCILLAMINE) [Concomitant]
  4. (GLIMEPIRIDE) (GLIMEPIRIDE) [Concomitant]
  5. (PROPIVERINE) (PROPIVERINE) [Concomitant]
  6. (SOLIFENACIN) (SOLIFENACIN) [Concomitant]
  7. (SENNOSIDE) (SENNOSIDE) [Concomitant]
  8. (METHOTREXATE) (METHOTREXATE) [Concomitant]

REACTIONS (2)
  - Skin fibrosis [None]
  - Nephrogenic systemic fibrosis [None]
